FAERS Safety Report 4345169-2 (Version None)
Quarter: 2004Q2

REPORT INFORMATION
  Report Type: 
  Country: None (occurrence: None)
  Receive Date: 20040420
  Receipt Date: 20040407
  Transmission Date: 20050107
  Serious: No
  Sender: FDA-Public Use
  Company Number: 04H-163-0256322-00

PATIENT
  Age: 81 Year
  Sex: Female

DRUGS (1)
  1. MANNITOL 20% [Suspect]
     Indication: REDUCTION OF INCREASED INTRACRANIAL PRESSURE
     Dosage: INTRAVENOUS
     Route: 042
     Dates: start: 20040404

REACTIONS (3)
  - DIALYSIS [None]
  - PHARMACEUTICAL PRODUCT COMPLAINT [None]
  - RENAL FAILURE [None]
